FAERS Safety Report 8153341-9 (Version None)
Quarter: 2012Q1

REPORT INFORMATION
  Report Type: 
  Country: None (occurrence: None)
  Receive Date: 20120221
  Receipt Date: 20120214
  Transmission Date: 20120608
  Serious: Yes (Other)
  Sender: FDA-Public Use
  Company Number: CA-US-EMD SERONO, INC.-7082943

PATIENT
  Sex: Female

DRUGS (2)
  1. SYNTROID (SYNTHROID) [Concomitant]
     Indication: HYPOTHYROIDISM
     Dates: start: 20120203
  2. REBIF [Suspect]
     Indication: RELAPSING-REMITTING MULTIPLE SCLEROSIS
     Route: 058
     Dates: start: 20071017

REACTIONS (5)
  - RESTLESS LEGS SYNDROME [None]
  - MUSCLE SPASMS [None]
  - HYPOTHYROIDISM [None]
  - COELIAC DISEASE [None]
  - DIARRHOEA [None]
